FAERS Safety Report 22041057 (Version 2)
Quarter: 2023Q1

REPORT INFORMATION
  Report Type: Spontaneous
  Country: DE (occurrence: DE)
  Receive Date: 20230227
  Receipt Date: 20230315
  Transmission Date: 20230418
  Serious: Yes (Other)
  Sender: FDA-Public Use
  Company Number: DE-ELI_LILLY_AND_COMPANY-DE202302008779

PATIENT
  Age: 82 Year
  Sex: Male
  Weight: 76 kg

DRUGS (3)
  1. BAQSIMI [Suspect]
     Active Substance: GLUCAGON
     Indication: Type 1 diabetes mellitus
     Dosage: UNK, UNKNOWN
     Route: 065
  2. BAQSIMI [Suspect]
     Active Substance: GLUCAGON
     Indication: Hypoglycaemia
  3. INSULIN NOS [Concomitant]
     Active Substance: INSULIN NOS
     Indication: Type 1 diabetes mellitus

REACTIONS (6)
  - Hypoglycaemic seizure [Recovered/Resolved]
  - Neuroglycopenia [Recovered/Resolved]
  - Loss of consciousness [Recovered/Resolved]
  - Respiratory depression [Recovered/Resolved]
  - Hypoglycaemia [Recovered/Resolved]
  - Drug ineffective [Unknown]

NARRATIVE: CASE EVENT DATE: 20221009
